FAERS Safety Report 25733819 (Version 1)
Quarter: 2025Q3

REPORT INFORMATION
  Report Type: Spontaneous
  Country: AU (occurrence: AU)
  Receive Date: 20250828
  Receipt Date: 20250828
  Transmission Date: 20251020
  Serious: Yes (Hospitalization)
  Sender: AMGEN
  Company Number: AU-AMGEN-AUSSP2025168013

PATIENT
  Age: 75 Year
  Sex: Female

DRUGS (26)
  1. BEVACIZUMAB [Suspect]
     Active Substance: BEVACIZUMAB
     Indication: Neoplasm
     Dosage: 950 MILLIGRAM, Q3WK
     Route: 040
     Dates: start: 20250508
  2. BEVACIZUMAB [Suspect]
     Active Substance: BEVACIZUMAB
     Dosage: 950 MILLIGRAM, Q3WK
     Route: 040
     Dates: start: 20250619
  3. BEVACIZUMAB [Suspect]
     Active Substance: BEVACIZUMAB
     Dosage: 950 MILLIGRAM, Q3WK
     Route: 040
     Dates: start: 20250529
  4. AZD-5335 [Suspect]
     Active Substance: AZD-5335
     Indication: Neoplasm
     Dosage: 152 MILLIGRAM, Q3WK
     Route: 040
     Dates: start: 20250508
  5. AZD-5335 [Suspect]
     Active Substance: AZD-5335
     Dosage: 152 MILLIGRAM, Q3WK
     Route: 040
     Dates: start: 20250619
  6. AZD-5335 [Suspect]
     Active Substance: AZD-5335
     Dosage: 152 MILLIGRAM, Q3WK
     Route: 040
     Dates: start: 20250529
  7. CALTRATE [Concomitant]
     Active Substance: CALCIUM CARBONATE
     Indication: Prophylaxis
     Route: 048
     Dates: start: 20050101
  8. GAVISCON [Concomitant]
     Active Substance: ALUMINUM HYDROXIDE\MAGNESIUM CARBONATE
     Indication: Gastrooesophageal reflux disease
     Route: 048
     Dates: start: 20250519
  9. HIPREX [Concomitant]
     Active Substance: METHENAMINE HIPPURATE
     Indication: Prophylaxis
     Route: 048
     Dates: start: 20240101, end: 20250416
  10. HIPREX [Concomitant]
     Active Substance: METHENAMINE HIPPURATE
     Route: 048
     Dates: start: 20250527
  11. PANADOL [Concomitant]
     Active Substance: ACETAMINOPHEN
     Route: 048
     Dates: start: 20250507
  12. CALCIUM CARBONATE [Concomitant]
     Active Substance: CALCIUM CARBONATE
     Indication: Gastrooesophageal reflux disease
     Route: 048
     Dates: start: 20241110
  13. CARBOPLATIN [Concomitant]
     Active Substance: CARBOPLATIN
  14. DEXAMETHASONE [Concomitant]
     Active Substance: DEXAMETHASONE
     Indication: Prophylaxis
     Route: 048
     Dates: start: 20250508, end: 20250511
  15. FLUOROMETHOLONE [Concomitant]
     Active Substance: FLUOROMETHOLONE
     Indication: Corneal transplant
     Route: 047
     Dates: start: 19950101
  16. FLUOROMETHOLONE [Concomitant]
     Active Substance: FLUOROMETHOLONE
     Route: 047
     Dates: start: 20050101
  17. GLUCOSAMINE [Concomitant]
     Active Substance: GLUCOSAMINE
     Indication: Prophylaxis
     Route: 048
     Dates: start: 20050101, end: 20250416
  18. LIPEGFILGRASTIM [Concomitant]
     Active Substance: LIPEGFILGRASTIM
     Indication: Prophylaxis
     Dosage: 6 MILLIGRAM, Q3WK
     Route: 058
     Dates: start: 20250620
  19. LOPERAMIDE HYDROCHLORIDE [Concomitant]
     Active Substance: LOPERAMIDE HYDROCHLORIDE
     Indication: Adverse event
     Route: 048
     Dates: start: 20250603
  20. MAGNESIUM [Concomitant]
     Active Substance: MAGNESIUM
     Indication: Prophylaxis
     Route: 048
     Dates: start: 20241211
  21. METOCLOPRAMIDE [Concomitant]
     Active Substance: METOCLOPRAMIDE
     Indication: Adverse event
     Route: 048
     Dates: start: 20250508
  22. PALONOSETRON [Concomitant]
     Active Substance: PALONOSETRON
     Indication: Prophylaxis
     Route: 040
     Dates: start: 20250508, end: 20250508
  23. PIPERACILLIN SODIUM [Concomitant]
     Active Substance: PIPERACILLIN SODIUM
     Indication: Adverse event
     Route: 040
     Dates: start: 20250625
  24. SODIUM CHLORIDE [Concomitant]
     Active Substance: SODIUM CHLORIDE
     Indication: Adverse event
     Route: 040
     Dates: start: 20250625
  25. Ural [Concomitant]
     Indication: Adverse event
     Route: 048
     Dates: start: 20250530
  26. VITAMIN C [Concomitant]
     Active Substance: ASCORBIC ACID
     Indication: Prophylaxis
     Route: 048
     Dates: start: 20050101, end: 20250416

REACTIONS (2)
  - Enterocolitis [Recovered/Resolved]
  - Febrile neutropenia [Recovered/Resolved]

NARRATIVE: CASE EVENT DATE: 20250625
